FAERS Safety Report 6389792-2 (Version None)
Quarter: 2009Q4

REPORT INFORMATION
  Report Type: 
  Country: None (occurrence: None)
  Receive Date: 20091006
  Receipt Date: 20090930
  Transmission Date: 20100525
  Serious: Yes (Other)
  Sender: FDA-Public Use
  Company Number: ES-JNJFOC-20091000232

PATIENT
  Age: 45 Year
  Sex: Male

DRUGS (2)
  1. REMICADE [Suspect]
     Indication: COLITIS ULCERATIVE
     Dosage: RECEIVED 5 DOSES ON UNSPECIFIED DATES
     Route: 042
  2. AZATHIOPRINE [Concomitant]

REACTIONS (1)
  - TUBERCULOSIS [None]
